FAERS Safety Report 4769842-7 (Version None)
Quarter: 2005Q3

REPORT INFORMATION
  Report Type: 
  Country: None (occurrence: None)
  Receive Date: 20050912
  Receipt Date: 20050718
  Transmission Date: 20060218
  Serious: No
  Sender: FDA-Public Use
  Company Number: 2005-01534

PATIENT
  Age: 67 Year
  Sex: Female

DRUGS (4)
  1. VELCADE [Suspect]
     Indication: MULTIPLE MYELOMA
     Dosage: 1.30 MG/M2, 2/WEEK, INTRAVENOUS
     Route: 042
     Dates: start: 20050712
  2. ANTIHYPERTENSIVES [Concomitant]
  3. ANTIEMETICS [Concomitant]
  4. ANTINAUSEANTS [Concomitant]

REACTIONS (2)
  - ANOREXIA [None]
  - NAUSEA [None]
